FAERS Safety Report 8219395-6 (Version None)
Quarter: 2012Q1

REPORT INFORMATION
  Report Type: 
  Country: None (occurrence: None)
  Receive Date: 20120319
  Receipt Date: 20120314
  Transmission Date: 20120608
  Serious: Yes (Hospitalization)
  Sender: FDA-Public Use
  Company Number: HU-AMGEN-HUNSP2012017366

PATIENT
  Age: 2 Year
  Sex: Male

DRUGS (5)
  1. MEDROL [Concomitant]
     Indication: IDIOPATHIC THROMBOCYTOPENIC PURPURA
     Dosage: 2 MG, UNK
     Route: 048
     Dates: start: 20111101
  2. IMURAN [Concomitant]
     Dosage: 25 MG, Q12H
     Route: 048
     Dates: start: 20111001
  3. QUAMATEL [Concomitant]
  4. NPLATE [Suspect]
     Indication: IDIOPATHIC THROMBOCYTOPENIC PURPURA
     Dosage: 50 MUG, QWK
     Route: 058
     Dates: start: 20120206
  5. QUAMATEL [Concomitant]
     Dosage: 20 MG, UNK
     Route: 048
     Dates: start: 20111101

REACTIONS (1)
  - HYPOGLYCAEMIA [None]
